FAERS Safety Report 8577608-5 (Version None)
Quarter: 2012Q3

REPORT INFORMATION
  Report Type: 
  Country: None (occurrence: None)
  Receive Date: 20120807
  Receipt Date: 20120726
  Transmission Date: 20120928
  Serious: Yes (Other)
  Sender: FDA-Public Use
  Company Number: CA-FRI-1000029716

PATIENT
  Age: 55 Year
  Sex: Female

DRUGS (10)
  1. BACLOFEN [Suspect]
     Indication: MUSCLE SPASMS
     Dosage: 60 MG AS NEEDED
  2. CLONAZEPAM [Suspect]
     Indication: ANXIETY
     Dosage: 3 MG
     Route: 048
     Dates: start: 20111211
  3. BUTRANS [Suspect]
     Dosage: 240 I?G
     Route: 062
     Dates: start: 20110101, end: 20110101
  4. BUTRANS [Suspect]
     Dosage: 480 I?G
     Route: 062
  5. ESCITALOPRAM [Suspect]
     Indication: ANXIETY
     Dosage: 20 MG
     Route: 048
     Dates: end: 20110801
  6. BUTRANS [Suspect]
     Indication: PAIN
     Dosage: 480 I?G
     Route: 062
     Dates: start: 20110801, end: 20110101
  7. CESAMET [Suspect]
     Indication: BACK PAIN
     Dosage: 0.5 MG
     Route: 048
     Dates: end: 20110801
  8. CIPRO XR [Concomitant]
     Indication: URINARY TRACT INFECTION
     Dosage: 1000 MG
     Route: 048
     Dates: start: 20111208
  9. BUTRANS [Suspect]
     Dosage: 360 I?G
     Route: 062
     Dates: start: 20110101, end: 20110101
  10. BUTRANS [Suspect]
     Dosage: 120 I?G
     Route: 062
     Dates: start: 20110101, end: 20110101

REACTIONS (20)
  - GAIT DISTURBANCE [None]
  - HEADACHE [None]
  - PULSE PRESSURE INCREASED [None]
  - DIARRHOEA [None]
  - SOMNOLENCE [None]
  - ANXIETY [None]
  - HALLUCINATION [None]
  - MUSCLE SPASMS [None]
  - PALPITATIONS [None]
  - BALANCE DISORDER [None]
  - DISTURBANCE IN ATTENTION [None]
  - ASTHENIA [None]
  - EUPHORIC MOOD [None]
  - URINARY TRACT INFECTION [None]
  - VOMITING [None]
  - DIZZINESS [None]
  - DYSPNOEA [None]
  - DRUG INTERACTION [None]
  - DISORIENTATION [None]
  - HYPOPNOEA [None]
